FAERS Safety Report 18662466 (Version 1)
Quarter: 2020Q4

REPORT INFORMATION
  Report Type: Spontaneous
  Country: US (occurrence: US)
  Receive Date: 20201224
  Receipt Date: 20201224
  Transmission Date: 20210114
  Serious: Yes (Death, Life-Threatening, Other)
  Sender: FDA-Public Use
  Company Number: US-AMGEN-USASP2020205689

PATIENT

DRUGS (8)
  1. EPOETIN ALFA [Suspect]
     Active Substance: ERYTHROPOIETIN
     Indication: ANAEMIA
     Route: 065
  2. PREDNISONE. [Concomitant]
     Active Substance: PREDNISONE
     Dosage: 100 MG ORALLY ON DAYS 19-23 OF THE CYCLE
     Route: 048
  3. DOXORUBICIN [Concomitant]
     Active Substance: DOXORUBICIN
     Dosage: 50 MG/M2  IV ON DAY 1
     Route: 042
  4. DARBEPOETIN ALFA [Suspect]
     Active Substance: DARBEPOETIN ALFA
     Indication: MYELODYSPLASTIC SYNDROME
     Route: 065
  5. CYCLOPHOSPHAMIDE. [Concomitant]
     Active Substance: CYCLOPHOSPHAMIDE
     Dosage: 1000 MG/M2  IV ON DAY 1
     Route: 042
  6. FILGRASTIM [Suspect]
     Active Substance: FILGRASTIM
     Indication: PROPHYLAXIS
     Dosage: 300 MICROGRAM SUBCUTANEOUSLY (PATIENTS { 70KG) OR 480 MICROGRAM SUBCUTANEOUSLY (PATIENTS } 70 KG
     Route: 058
  7. PEGFILGRASTIM [Suspect]
     Active Substance: PEGFILGRASTIM
     Indication: PROPHYLAXIS
     Dosage: 6 MILLIGRAM
     Route: 058
  8. VINCRISTINE [Concomitant]
     Active Substance: VINCRISTINE
     Dosage: 1.4 MG/M 2  IV ON THE FIRST DAY OF THE CHOP
     Route: 042

REACTIONS (48)
  - Mantle cell lymphoma [Fatal]
  - Pneumonia [Unknown]
  - Basal cell carcinoma [Unknown]
  - Syncope [Unknown]
  - Oesophageal adenocarcinoma [Fatal]
  - Myelodysplastic syndrome [Fatal]
  - End stage renal disease [Fatal]
  - Cardiac failure congestive [Fatal]
  - Transaminases increased [Unknown]
  - Thrombocytopenia [Unknown]
  - Therapy partial responder [Unknown]
  - Cerebrovascular accident [Fatal]
  - Endometrial adenocarcinoma [Unknown]
  - Herpes zoster [Unknown]
  - Pulmonary embolism [Unknown]
  - White blood cell count decreased [Unknown]
  - Fatigue [Unknown]
  - Malignant melanoma [Unknown]
  - Squamous cell carcinoma of skin [Unknown]
  - Peroneal nerve palsy [Unknown]
  - Upper gastrointestinal haemorrhage [Unknown]
  - Febrile neutropenia [Unknown]
  - Neutropenia [Unknown]
  - Anaemia [Unknown]
  - Acute kidney injury [Unknown]
  - Squamous cell carcinoma [Unknown]
  - Death [Fatal]
  - Post procedural complication [Fatal]
  - Intussusception [Unknown]
  - Antibody test abnormal [Unknown]
  - Pleurisy [Unknown]
  - Plasma cell myeloma [Unknown]
  - Hypotension [Unknown]
  - Cough [Unknown]
  - Nephrotic syndrome [Unknown]
  - Pain [Unknown]
  - Constipation [Unknown]
  - Cardio-respiratory arrest [Fatal]
  - Pericarditis [Unknown]
  - Orthostatic hypotension [Unknown]
  - Pyrexia [Unknown]
  - Malignant melanoma in situ [Unknown]
  - Nausea [Unknown]
  - Headache [Unknown]
  - Lymphadenitis [Unknown]
  - Oral pain [Unknown]
  - Neuropathy peripheral [Unknown]
  - Diarrhoea [Unknown]
